FAERS Safety Report 9213933 (Version 2)
Quarter: 2013Q4

REPORT INFORMATION
  Report Type: Spontaneous
  Country: US (occurrence: US)
  Receive Date: 20130405
  Receipt Date: 20131212
  Transmission Date: 20140711
  Serious: Yes (Disabling, Other)
  Sender: FDA-Public Use
  Company Number: US-BAYER-2013-040365

PATIENT
  Age: 34 Year
  Sex: Female

DRUGS (5)
  1. YAZ [Suspect]
     Dosage: UNK
     Dates: start: 200702, end: 201204
  2. YASMIN [Suspect]
     Dosage: UNK
     Dates: start: 200702, end: 201204
  3. OCELLA [Suspect]
     Dosage: UNK
     Dates: start: 200702, end: 201204
  4. ZYRTEC [Concomitant]
  5. LORTAB [Concomitant]

REACTIONS (5)
  - Gallbladder disorder [None]
  - Injury [None]
  - Pain [None]
  - Deformity [None]
  - Cholecystitis chronic [None]
